FAERS Safety Report 7389364-7 (Version None)
Quarter: 2011Q2

REPORT INFORMATION
  Report Type: 
  Country: None (occurrence: None)
  Receive Date: 20110401
  Receipt Date: 20110322
  Transmission Date: 20111010
  Serious: Yes (Other)
  Sender: FDA-Public Use
  Company Number: B0707382A

PATIENT
  Sex: Male
  Weight: 35.4 kg

DRUGS (5)
  1. AMOXYCILLIN [Suspect]
     Dosage: 1000MG PER DAY
     Route: 048
  2. SEROQUEL [Suspect]
     Indication: SCHIZOAFFECTIVE DISORDER
     Dosage: 600MG PER DAY
     Route: 048
     Dates: start: 20100101
  3. SEROQUEL [Suspect]
     Dosage: 800MG PER DAY
     Route: 048
  4. METRONIDAZOLE [Suspect]
     Dosage: 800MG PER DAY
     Route: 065
  5. ANTIBIOTIC [Suspect]
     Indication: INFECTION
     Route: 065

REACTIONS (8)
  - DRUG INTERACTION [None]
  - HALLUCINATION, AUDITORY [None]
  - DELUSION [None]
  - SUICIDAL IDEATION [None]
  - ACUTE PSYCHOSIS [None]
  - INTENTIONAL OVERDOSE [None]
  - DEPRESSED MOOD [None]
  - HALLUCINATION [None]
